FAERS Safety Report 10723338 (Version 1)
Quarter: 2015Q1

REPORT INFORMATION
  Report Type: Spontaneous
  Country: US (occurrence: US)
  Receive Date: 20150120
  Receipt Date: 20150120
  Transmission Date: 20150721
  Serious: Yes (Other)
  Sender: FDA-Public Use
  Company Number: US-ELI_LILLY_AND_COMPANY-US201501002715

PATIENT
  Sex: Female

DRUGS (1)
  1. FORTEO [Suspect]
     Active Substance: TERIPARATIDE
     Indication: OSTEOPOROSIS
     Dosage: UNK, UNKNOWN
     Route: 065

REACTIONS (9)
  - Pruritus [Unknown]
  - Arthralgia [Unknown]
  - Burning sensation [Unknown]
  - Musculoskeletal pain [Unknown]
  - Blister [Unknown]
  - Vaginal discharge [Unknown]
  - Pain in extremity [Unknown]
  - Renal failure [Unknown]
  - Urinary tract infection [Unknown]
